FAERS Safety Report 26051833 (Version 2)
Quarter: 2025Q4

REPORT INFORMATION
  Report Type: Report from Study
  Country: EU (occurrence: EU)
  Receive Date: 20251117
  Receipt Date: 20251124
  Transmission Date: 20260118
  Serious: Yes (Life-Threatening, Hospitalization)
  Sender: TEVA
  Company Number: EU-TEVA-VS-3389594

PATIENT

DRUGS (3)
  1. AMIODARONE [Suspect]
     Active Substance: AMIODARONE
     Indication: Junctional ectopic tachycardia
     Dosage: RECEIVED 20 MG/KG/DAY WITH A BOLUS OF 5 MG/KG OVER 30 60 MIN
     Route: 065
  2. AMIODARONE [Suspect]
     Active Substance: AMIODARONE
     Indication: Junctional ectopic tachycardia
     Dosage: RECEIVED 20 MG/KG/DAY WITH A BOLUS OF 5 MG/KG OVER 30 60 MIN
     Route: 065
  3. LANDIOLOL [Suspect]
     Active Substance: LANDIOLOL
     Indication: Junctional ectopic tachycardia
     Dosage: 10  G/KG/MIN AND TITRATED UP TO 80  G/KG/ MIN AS NEEDED
     Route: 065

REACTIONS (3)
  - Hypotension [Recovered/Resolved]
  - Cardiac failure [Recovered/Resolved]
  - Haemodynamic instability [Recovered/Resolved]
